FAERS Safety Report 5714223-2 (Version None)
Quarter: 2008Q2

REPORT INFORMATION
  Report Type: 
  Country: None (occurrence: None)
  Receive Date: 20080423
  Receipt Date: 20080115
  Transmission Date: 20081010
  Serious: No
  Sender: FDA-Public Use
  Company Number: US-KINGPHARMUSA00001-K200800050

PATIENT

DRUGS (3)
  1. SKELAXIN [Suspect]
     Indication: NEURALGIA
     Dosage: 800 MG, UNK
     Route: 048
     Dates: start: 20080101, end: 20080101
  2. IBUPROFEN [Concomitant]
  3. LEXAPRO [Concomitant]

REACTIONS (3)
  - FEELING JITTERY [None]
  - INSOMNIA [None]
  - RESTLESSNESS [None]
